FAERS Safety Report 23296629 (Version 1)
Quarter: 2023Q4

REPORT INFORMATION
  Report Type: Spontaneous
  Country: PE (occurrence: PE)
  Receive Date: 20231214
  Receipt Date: 20231214
  Transmission Date: 20240110
  Serious: Yes (Other)
  Sender: FDA-Public Use
  Company Number: PE-PFIZER INC-PV202300199996

PATIENT
  Age: 54 Year
  Sex: Female

DRUGS (3)
  1. IXIFI [Suspect]
     Active Substance: INFLIXIMAB-QBTX
     Dosage: UNK
  2. IXIFI [Suspect]
     Active Substance: INFLIXIMAB-QBTX
     Dosage: UNK
  3. IXIFI [Suspect]
     Active Substance: INFLIXIMAB-QBTX
     Dosage: UNK

REACTIONS (1)
  - Dermatitis exfoliative generalised [Unknown]
